FAERS Safety Report 20039730 (Version 2)
Quarter: 2021Q4

REPORT INFORMATION
  Report Type: Report from Study
  Country: DE (occurrence: DE)
  Receive Date: 20211106
  Receipt Date: 20211204
  Transmission Date: 20220303
  Serious: Yes (Life-Threatening, Hospitalization)
  Sender: FDA-Public Use
  Company Number: DE-NOVARTISPH-NVSC2021DE237964

PATIENT
  Sex: Male

DRUGS (2)
  1. COSENTYX [Suspect]
     Active Substance: SECUKINUMAB
     Indication: Psoriatic arthropathy
     Dosage: 150 MG, QMO
     Route: 065
     Dates: start: 20190329, end: 20200429
  2. COSENTYX [Suspect]
     Active Substance: SECUKINUMAB
     Dosage: 150 MG, Q2W
     Route: 065
     Dates: start: 20200430, end: 20200812

REACTIONS (9)
  - Pulmonary embolism [Recovered/Resolved]
  - Appendicitis [Unknown]
  - Appendix cancer [Unknown]
  - Mechanical ileus [Unknown]
  - Suture related complication [Unknown]
  - Internal hernia [Unknown]
  - Hernia perforation [Unknown]
  - Impaired healing [Unknown]
  - Inappropriate schedule of product administration [Unknown]

NARRATIVE: CASE EVENT DATE: 20200724
